FAERS Safety Report 26174001 (Version 1)
Quarter: 2025Q4

REPORT INFORMATION
  Report Type: Spontaneous
  Country: US (occurrence: US)
  Receive Date: 20251218
  Receipt Date: 20251218
  Transmission Date: 20260118
  Serious: No
  Sender: ALVOGEN
  Company Number: US-ALVOGEN-2024095889

PATIENT
  Age: 69 Year
  Sex: Female

DRUGS (2)
  1. FENTANYL [Suspect]
     Active Substance: FENTANYL
     Indication: Bone pain
     Dosage: LAST MONTH BOX; 12 MCG/HR
     Route: 062
     Dates: start: 202410
  2. FENTANYL [Suspect]
     Active Substance: FENTANYL
     Indication: Bone pain
     Dosage: EXP: APR-2027, S NO:109488727035 ?GTIN: 00347781423476; 12 MCG/HR
     Route: 062
     Dates: start: 20241121

REACTIONS (6)
  - Withdrawal syndrome [Recovered/Resolved]
  - Device adhesion issue [Unknown]
  - Device malfunction [Unknown]
  - Wrong technique in device usage process [Unknown]
  - Incorrect dose administered [Unknown]
  - Multiple use of single-use product [Unknown]

NARRATIVE: CASE EVENT DATE: 20241001
